FAERS Safety Report 15014249 (Version 4)
Quarter: 2019Q4

REPORT INFORMATION
  Report Type: Report from Study
  Country: BR (occurrence: BR)
  Receive Date: 20180615
  Receipt Date: 20191127
  Transmission Date: 20200122
  Serious: Yes (Other)
  Sender: FDA-Public Use
  Company Number: BR-BRISTOL-MYERS SQUIBB COMPANY-BMS-2017-064700

PATIENT
  Age: 74 Year
  Sex: Female

DRUGS (2)
  1. ABATACEPT [Suspect]
     Active Substance: ABATACEPT
     Indication: RHEUMATOID ARTHRITIS
     Dosage: TWO 250MG VIALS
     Route: 042
  2. METHOTREXATE. [Concomitant]
     Active Substance: METHOTREXATE
     Indication: PRODUCT USED FOR UNKNOWN INDICATION
     Dosage: UNK
     Route: 065

REACTIONS (8)
  - Cholelithiasis [Recovering/Resolving]
  - Immunodeficiency [Unknown]
  - Product dose omission [Unknown]
  - Influenza [Recovered/Resolved]
  - Urinary tract infection [Recovering/Resolving]
  - Amnesia [Unknown]
  - Pain [Unknown]
  - Ear disorder [Unknown]

NARRATIVE: CASE EVENT DATE: 201706
